FAERS Safety Report 26047536 (Version 1)
Quarter: 2025Q4

REPORT INFORMATION
  Report Type: Spontaneous
  Country: US (occurrence: US)
  Receive Date: 20251114
  Receipt Date: 20251114
  Transmission Date: 20260117
  Serious: No
  Sender: ROCHE
  Company Number: US-ROCHE-10000432041

PATIENT
  Age: 45 Year
  Sex: Female

DRUGS (11)
  1. XOLAIR [Suspect]
     Active Substance: OMALIZUMAB
     Indication: Product used for unknown indication
     Dosage: STRENGTH: 150 MG
     Route: 058
     Dates: start: 20190424
  2. ACYCLOVIR TAB 400 mg [Concomitant]
     Route: 048
  3. AZITHROMYCIN [Concomitant]
     Active Substance: AZITHROMYCIN
  4. CYCLOBENZAPR TAB 10MG [Concomitant]
     Route: 048
  5. DEXAMETHASON ELX 0.5/ 5ml [Concomitant]
  6. FAMOTIDINE [Concomitant]
     Active Substance: FAMOTIDINE
  7. HYDROXYCHLOROQUINE [Concomitant]
     Active Substance: HYDROXYCHLOROQUINE
     Route: 048
  8. LEVOCETIRIZI TAB 5MG [Concomitant]
     Route: 048
  9. MELOXICAM [Concomitant]
     Active Substance: MELOXICAM
     Route: 048
  10. METHYLPR SS INJ 125 MG [Concomitant]
  11. METHYLPRED TAB 4MG [Concomitant]
     Route: 048

REACTIONS (2)
  - Inflammation [Unknown]
  - Cardiovascular disorder [Unknown]

NARRATIVE: CASE EVENT DATE: 20251106
